FAERS Safety Report 7867623 (Version 4)
Quarter: 2012Q4

REPORT INFORMATION
  Report Type: 
  Country: US (occurrence: US)
  Receive Date: 20110323
  Receipt Date: 20121128
  Transmission Date: 20130627
  Serious: Yes (Hospitalization, Other)
  Sender: FDA-Public Use
  Company Number: US-ROCHE-765495

PATIENT
  Age: 14 Year
  Sex: Male
  Weight: 95.34 kg

DRUGS (2)
  1. ACCUTANE [Suspect]
     Indication: ACNE
     Route: 065
  2. ACCUTANE [Suspect]
     Route: 065
     Dates: start: 20010712, end: 200201

REACTIONS (8)
  - Crohn^s disease [Unknown]
  - Small intestinal obstruction [Unknown]
  - Inflammatory bowel disease [Unknown]
  - Gastrointestinal stenosis [Unknown]
  - Depression [Unknown]
  - Intestinal haemorrhage [Unknown]
  - Lip dry [Unknown]
  - Blood triglycerides increased [Unknown]
